FAERS Safety Report 9361763 (Version 3)
Quarter: 2015Q1

REPORT INFORMATION
  Report Type: Report from Study
  Country: JP (occurrence: JP)
  Receive Date: 20130621
  Receipt Date: 20150212
  Transmission Date: 20150721
  Serious: Yes (Hospitalization)
  Sender: FDA-Public Use
  Company Number: JP-BRISTOL-MYERS SQUIBB COMPANY-19029164

PATIENT
  Age: 58 Year
  Sex: Male

DRUGS (6)
  1. TRUVADA [Concomitant]
     Active Substance: EMTRICITABINE\TENOFOVIR DISOPROXIL FUMARATE
     Indication: HIV INFECTION
     Dosage: 1 DF, UNK
     Route: 048
     Dates: start: 20050824, end: 20120531
  2. LOPEMIN [Concomitant]
     Active Substance: LOPERAMIDE HYDROCHLORIDE
     Indication: DIARRHOEA
     Dosage: 1 MG, QD
     Route: 065
     Dates: end: 20130628
  3. EFAVIRENZ [Suspect]
     Active Substance: EFAVIRENZ
     Indication: HIV INFECTION
     Dosage: CAP 200MG  19SEP01-12DEC01;  06FEB02-31MAY12
     Route: 048
     Dates: start: 20010919, end: 20120531
  4. ISENTRESS [Concomitant]
     Active Substance: RALTEGRAVIR POTASSIUM
     Indication: HIV INFECTION
     Dosage: 800 MG, UNK
     Route: 048
     Dates: start: 20120601
  5. KALETRA [Concomitant]
     Active Substance: LOPINAVIR\RITONAVIR
     Indication: HIV INFECTION
     Dosage: 06FEB02-07NOV06:8DF  08NOV06-06MAR07:6DF  07MAR07-31MAR11:4DF  01APR11-31MAY12:2DF  2TAB TWICE A DAY
     Route: 048
     Dates: start: 20020206, end: 20120531
  6. DIOVAN [Concomitant]
     Active Substance: VALSARTAN
     Indication: PROPHYLAXIS
     Dosage: 40 MG, UNK
     Route: 065
     Dates: end: 20120521

REACTIONS (5)
  - White blood cell count increased [Recovered/Resolved]
  - Hyperthyroidism [Not Recovered/Not Resolved]
  - Blood alkaline phosphatase increased [Recovered/Resolved]
  - Gynaecomastia [Recovering/Resolving]
  - Femur fracture [Recovering/Resolving]

NARRATIVE: CASE EVENT DATE: 20090415
